FAERS Safety Report 7522008-X (Version None)
Quarter: 2011Q2

REPORT INFORMATION
  Report Type: 
  Country: None (occurrence: None)
  Receive Date: 20110603
  Receipt Date: 20110520
  Transmission Date: 20111010
  Serious: Yes (Hospitalization)
  Sender: FDA-Public Use
  Company Number: CA-JNJFOC-20101208292

PATIENT
  Sex: Female
  Weight: 84.1 kg

DRUGS (7)
  1. PRILOSEC [Concomitant]
  2. REMICADE [Suspect]
     Indication: CROHN'S DISEASE
     Route: 042
     Dates: start: 20081027
  3. ADVAIR DISKUS 100/50 [Concomitant]
  4. ATROVENT [Concomitant]
  5. FOLIC ACID [Concomitant]
  6. OXYCONTIN [Concomitant]
  7. ZOPICLONE [Concomitant]

REACTIONS (1)
  - CHOLECYSTECTOMY [None]
